FAERS Safety Report 5137348-1 (Version None)
Quarter: 2006Q4

REPORT INFORMATION
  Report Type: 
  Country: None (occurrence: None)
  Receive Date: 20061030
  Receipt Date: 20051017
  Transmission Date: 20070319
  Serious: No
  Sender: FDA-Public Use
  Company Number: US-GLAXOSMITHKLINE-A0578451A

PATIENT
  Age: 7 Year
  Sex: Female

DRUGS (3)
  1. ADVAIR HFA [Suspect]
     Indication: ASTHMA
     Dosage: 1PUFF TWICE PER DAY
     Route: 055
     Dates: start: 20050915, end: 20051017
  2. SINGULAIR [Concomitant]
  3. ALBUTEROL [Concomitant]

REACTIONS (2)
  - OVERDOSE [None]
  - PHARMACEUTICAL PRODUCT COMPLAINT [None]
